FAERS Safety Report 15916231 (Version 2)
Quarter: 2019Q1

REPORT INFORMATION
  Report Type: Report from Study
  Country: CO (occurrence: CO)
  Receive Date: 20190204
  Receipt Date: 20190227
  Transmission Date: 20190417
  Serious: Yes (Other)
  Sender: FDA-Public Use
  Company Number: CO-SEATTLE GENETICS-2019SGN00200

PATIENT
  Age: 57 Year
  Sex: Male
  Weight: 80 kg

DRUGS (5)
  1. DERMOVATE [Concomitant]
     Active Substance: CLOBETASOL
     Route: 065
  2. DERMOVATE [Concomitant]
     Active Substance: CLOBETASOL
     Dosage: UNK UNK, BID
  3. DALTEPARIN [Concomitant]
     Active Substance: DALTEPARIN
     Dosage: 1000 INTERNATIONAL UNIT, QD
     Route: 065
  4. BRENTUXIMAB VEDOTIN-MPI [Suspect]
     Active Substance: BRENTUXIMAB VEDOTIN
     Indication: HODGKIN^S DISEASE
     Dosage: 145 MG, UNK
     Route: 042
     Dates: start: 20180606
  5. BETAMETHASONE. [Concomitant]
     Active Substance: BETAMETHASONE
     Dosage: UNK, BID
     Route: 061

REACTIONS (2)
  - Limb injury [Not Recovered/Not Resolved]
  - Coagulopathy [Unknown]

NARRATIVE: CASE EVENT DATE: 201901
